FAERS Safety Report 5533263-X (Version None)
Quarter: 2007Q4

REPORT INFORMATION
  Report Type: 
  Country: None (occurrence: None)
  Receive Date: 20071204
  Receipt Date: 20071126
  Transmission Date: 20080405
  Serious: Yes (Hospitalization)
  Sender: FDA-Public Use
  Company Number: B0495418A

PATIENT
  Age: 24 Year
  Sex: Female
  Weight: 110 kg

DRUGS (11)
  1. AVANDIA [Suspect]
     Indication: DRUG USE FOR UNKNOWN INDICATION
     Route: 048
     Dates: start: 20060912
  2. AMLODIPINE [Concomitant]
  3. ASPIRIN [Concomitant]
  4. AVANDIA [Concomitant]
  5. BISOPROLOL FUMARATE [Concomitant]
  6. CLOPIDOGREL [Concomitant]
  7. FUROSEMIDE [Concomitant]
  8. IRBESARTAN [Concomitant]
  9. LEVOTHYROXINE SODIUM [Concomitant]
  10. METFORMIN HCL [Concomitant]
     Dosage: 8.5MG THREE TIMES PER DAY
  11. SIMVASTATIN [Concomitant]

REACTIONS (1)
  - MYOCARDIAL INFARCTION [None]
